FAERS Safety Report 10572129 (Version 1)
Quarter: 2014Q4

REPORT INFORMATION
  Report Type: Spontaneous
  Country: US (occurrence: US)
  Receive Date: 20141107
  Receipt Date: 20141107
  Transmission Date: 20150529
  Serious: Yes (Other)
  Sender: FDA-Public Use
  Company Number: US-ASTRAZENECA-2014SE82607

PATIENT
  Age: 64 Year
  Sex: Female

DRUGS (17)
  1. GEMZAR [Concomitant]
     Active Substance: GEMCITABINE HYDROCHLORIDE
     Dates: start: 20120220
  2. INLYTA [Concomitant]
     Active Substance: AXITINIB
     Dates: start: 20130629, end: 20130820
  3. LEXAPRO [Concomitant]
     Active Substance: ESCITALOPRAM OXALATE
     Indication: DEPRESSION
     Dosage: DAILY
  4. TAMOXIFEN CITRATE. [Suspect]
     Active Substance: TAMOXIFEN CITRATE
     Indication: INTRADUCTAL PROLIFERATIVE BREAST LESION
     Route: 048
     Dates: start: 200705, end: 200808
  5. SUTENT [Suspect]
     Active Substance: SUNITINIB MALATE
     Indication: ADENOCARCINOMA
     Dosage: TOOK FOR FOUR WEEKS AND OFF FOR TWO WEEKS, PEPEAT EVERY SIX WEEKS
     Route: 048
  6. LEVOTHYROXINE [Concomitant]
     Active Substance: LEVOTHYROXINE
     Route: 048
  7. FEMARA [Concomitant]
     Active Substance: LETROZOLE
     Dates: start: 200808
  8. DURAGESIS [Concomitant]
     Indication: PAIN
     Dosage: 25 MCG PER HOUR CHANGE EVERY TWO HOURS
     Route: 062
     Dates: start: 20140619
  9. CARBOPLATIN. [Concomitant]
     Active Substance: CARBOPLATIN
     Dates: start: 20120220
  10. AFINITOR [Concomitant]
     Active Substance: EVEROLIMUS
     Dates: start: 20130427, end: 20130627
  11. INLYTA [Concomitant]
     Active Substance: AXITINIB
     Dates: start: 20131009, end: 20140403
  12. INLYTA [Concomitant]
     Active Substance: AXITINIB
     Dates: start: 20140320, end: 201405
  13. PRILOSEC [Suspect]
     Active Substance: OMEPRAZOLE MAGNESIUM
     Indication: GASTROOESOPHAGEAL REFLUX DISEASE
     Route: 048
  14. PRILOSEC [Suspect]
     Active Substance: OMEPRAZOLE MAGNESIUM
     Indication: GASTROOESOPHAGEAL REFLUX DISEASE
     Route: 048
     Dates: start: 20140619
  15. SUTENT [Suspect]
     Active Substance: SUNITINIB MALATE
     Indication: ADENOCARCINOMA
     Route: 048
     Dates: start: 20140606, end: 20140627
  16. LORAZEPAM. [Concomitant]
     Active Substance: LORAZEPAM
     Indication: DEPRESSION
     Dosage: DAILY
  17. VOTRIENT [Concomitant]
     Active Substance: PAZOPANIB HYDROCHLORIDE
     Dates: start: 20120309, end: 20130320

REACTIONS (26)
  - Tendon injury [Unknown]
  - Weight increased [Unknown]
  - Eye swelling [Unknown]
  - Hyperchlorhydria [Unknown]
  - Swelling face [Unknown]
  - Metastases to adrenals [Unknown]
  - Pain [Unknown]
  - Rectal haemorrhage [Unknown]
  - Metastases to liver [Unknown]
  - Hydronephrosis [Unknown]
  - Eating disorder [Unknown]
  - Renal failure [Unknown]
  - Renal cancer stage IV [Unknown]
  - Quality of life decreased [Unknown]
  - Vomiting [Not Recovered/Not Resolved]
  - Abdominal pain upper [Unknown]
  - Malaise [Unknown]
  - Fatigue [Unknown]
  - Abdominal discomfort [Unknown]
  - Nausea [Not Recovered/Not Resolved]
  - Metastases to spine [Unknown]
  - Thyroid disorder [Unknown]
  - Hypertension [Unknown]
  - Hot flush [Recovered/Resolved]
  - Feeling abnormal [Unknown]
  - Depression [Unknown]

NARRATIVE: CASE EVENT DATE: 2012
